FAERS Safety Report 9183850 (Version 5)
Quarter: 2013Q4

REPORT INFORMATION
  Report Type: Spontaneous
  Country: DE (occurrence: DE)
  Receive Date: 20130322
  Receipt Date: 20131226
  Transmission Date: 20140711
  Serious: Yes (Hospitalization)
  Sender: FDA-Public Use
  Company Number: DE-BAXTER-2013BAX009932

PATIENT
  Age: 64 Year
  Sex: Male

DRUGS (10)
  1. KIOVIG (30 G/300 ML) [Suspect]
     Indication: GUILLAIN-BARRE SYNDROME
     Route: 042
     Dates: start: 20130125, end: 20130125
  2. KIOVIG (30 G/300 ML) [Suspect]
     Route: 042
     Dates: start: 20130128, end: 20130128
  3. KIOVIG (20 G/200 ML) [Suspect]
     Indication: GUILLAIN-BARRE SYNDROME
     Route: 042
     Dates: start: 20130126
  4. KIOVIG (20 G/200 ML) [Suspect]
     Route: 042
     Dates: start: 20130127, end: 20130127
  5. KIOVIG (20 G/200 ML) [Suspect]
     Route: 042
     Dates: start: 20130129, end: 20130129
  6. KIOVIG (10 G/100 ML) [Suspect]
     Indication: GUILLAIN-BARRE SYNDROME
     Route: 042
     Dates: start: 20130126, end: 20130126
  7. KIOVIG (10 G/100 ML) [Suspect]
     Route: 042
     Dates: start: 20130127, end: 20130127
  8. KIOVIG (10 G/100 ML) [Suspect]
     Route: 042
     Dates: start: 20130129, end: 20130129
  9. CIPROFLOXACIN [Suspect]
     Indication: PYREXIA
     Dates: start: 20130203, end: 20130213
  10. CIPROFLOXACIN [Suspect]
     Indication: INFLAMMATORY MARKER INCREASED
     Dates: start: 20130303, end: 20130324

REACTIONS (9)
  - Haemoglobin decreased [Recovered/Resolved]
  - Respiratory moniliasis [Unknown]
  - Tracheal disorder [Unknown]
  - Pseudomonas infection [Unknown]
  - Urinary tract infection enterococcal [Unknown]
  - Haemolytic anaemia [Recovered/Resolved]
  - Pyrexia [Unknown]
  - Nightmare [Unknown]
  - Hallucination [Unknown]
